FAERS Safety Report 5529457-X (Version None)
Quarter: 2007Q4

REPORT INFORMATION
  Report Type: 
  Country: None (occurrence: None)
  Receive Date: 20071129
  Receipt Date: 20071120
  Transmission Date: 20080405
  Serious: Yes (Life-Threatening, Hospitalization)
  Sender: FDA-Public Use
  Company Number: HQWYE344027SEP07

PATIENT
  Sex: Male
  Weight: 93.34 kg

DRUGS (3)
  1. TORISEL [Suspect]
     Indication: RENAL CELL CARCINOMA STAGE UNSPECIFIED
     Route: 042
     Dates: start: 20070926, end: 20070926
  2. ACETAMINOPHEN [Concomitant]
     Indication: PAIN
     Route: 048
     Dates: start: 20070926, end: 20070926
  3. DIPHENHYDRAMINE HCL [Concomitant]
     Indication: HYPERSENSITIVITY
     Route: 042
     Dates: start: 20070926, end: 20070926

REACTIONS (5)
  - APNOEA [None]
  - CHEST PAIN [None]
  - FLUSHING [None]
  - HYPERSENSITIVITY [None]
  - UNRESPONSIVE TO STIMULI [None]
